FAERS Safety Report 5099767-1 (Version None)
Quarter: 2006Q3

REPORT INFORMATION
  Report Type: 
  Country: None (occurrence: None)
  Receive Date: 20060906
  Receipt Date: 20060824
  Transmission Date: 20061208
  Serious: Yes (Hospitalization)
  Sender: FDA-Public Use
  Company Number: 2006103959

PATIENT
  Age: 70 Year
  Sex: Male
  Weight: 87 kg

DRUGS (3)
  1. SUTENT [Suspect]
     Indication: METASTATIC RENAL CELL CARCINOMA
     Dosage: 50 MG (50 MG, 1 IN 1 D), ORAL
     Route: 048
     Dates: start: 20060216, end: 20060426
  2. METOPROLOL (METOPROLOL) [Concomitant]
  3. RAMIPRIL [Concomitant]

REACTIONS (2)
  - HYPERTENSIVE CRISIS [None]
  - TRANSIENT ISCHAEMIC ATTACK [None]
